FAERS Safety Report 13817680 (Version 1)
Quarter: 2017Q3

REPORT INFORMATION
  Report Type: Spontaneous
  Country: TT (occurrence: TT)
  Receive Date: 20170731
  Receipt Date: 20170731
  Transmission Date: 20171127
  Serious: Yes (Life-Threatening)
  Sender: FDA-Public Use
  Company Number: TT-BAYER-2017-143833

PATIENT
  Age: 51 Year
  Sex: Female

DRUGS (1)
  1. IOPROMIDE 300 [Suspect]
     Active Substance: IOPROMIDE
     Dosage: UNK UNK, ONCE

REACTIONS (11)
  - Haemodynamic instability [None]
  - Vomiting [None]
  - Hypotension [None]
  - Urticaria [None]
  - Tachycardia [None]
  - Nausea [None]
  - Anaphylactic reaction [None]
  - Cardiomyopathy acute [None]
  - Hypoxia [None]
  - Cardiogenic shock [None]
  - Dyspnoea [None]
